FAERS Safety Report 8441619 (Version 7)
Quarter: 2014Q2

REPORT INFORMATION
  Report Type: Spontaneous
  Country: CA (occurrence: CA)
  Receive Date: 20120305
  Receipt Date: 20140607
  Transmission Date: 20141212
  Serious: Yes (Life-Threatening, Hospitalization, Disabling, Other)
  Sender: FDA-Public Use
  Company Number: PHHY2012CA016148

PATIENT
  Age: 56 Year
  Sex: Female
  Weight: 69 kg

DRUGS (13)
  1. RASILEZ [Suspect]
     Indication: HYPERTENSION
     Dosage: 150 MG, DAILY
     Route: 048
     Dates: start: 20111205, end: 20120201
  2. RASILEZ [Suspect]
     Indication: MICROALBUMINURIA
  3. RASILEZ [Suspect]
     Indication: OFF LABEL USE
  4. IRBESARTAN [Suspect]
     Indication: HYPERTENSION
     Dosage: 1 DF (300 MG), DAILY
     Route: 048
     Dates: start: 201101
  5. AVAPRO [Concomitant]
     Dosage: 1 DF, DAILY
  6. NORVASC [Concomitant]
     Dosage: 1 DF, DAILY
  7. JANUVIA [Concomitant]
     Dosage: 1 DF, DAILY
     Route: 048
  8. VITAMIN B12 [Concomitant]
     Dosage: 1 DF, DAILY
     Route: 048
  9. LIPITOR [Concomitant]
     Dosage: UNK (20MG), UNK
     Route: 048
  10. METFORMIN [Concomitant]
     Dosage: 850 MG, TID
     Route: 048
  11. ESOMEPRAZOLE [Concomitant]
     Dosage: 40 MG, DALILY
  12. GLUCOPHAGE [Concomitant]
     Dosage: UNK UKN, UNK
  13. ASA [Concomitant]
     Dosage: 80 MG, DAILY
     Route: 048

REACTIONS (21)
  - Cerebrovascular accident [Recovered/Resolved with Sequelae]
  - Hemiplegia [Recovered/Resolved with Sequelae]
  - Hemiparesis [Recovered/Resolved with Sequelae]
  - Dysarthria [Recovered/Resolved with Sequelae]
  - Eating disorder [Recovered/Resolved with Sequelae]
  - Dysphagia [Recovered/Resolved with Sequelae]
  - Muscular weakness [Recovered/Resolved with Sequelae]
  - Aphasia [Recovered/Resolved with Sequelae]
  - Sensory loss [Unknown]
  - Motor dysfunction [Unknown]
  - Coordination abnormal [Unknown]
  - Confusional state [Recovered/Resolved with Sequelae]
  - Anxiety [Recovered/Resolved with Sequelae]
  - Neurologic neglect syndrome [Unknown]
  - Affect lability [Unknown]
  - Muscle spasticity [Unknown]
  - Carotid artery thrombosis [Unknown]
  - Fall [Unknown]
  - Adjustment disorder [Unknown]
  - Asthenia [Unknown]
  - Nausea [Unknown]
